FAERS Safety Report 7906606-7 (Version None)
Quarter: 2011Q4

REPORT INFORMATION
  Report Type: 
  Country: None (occurrence: None)
  Receive Date: 20111109
  Receipt Date: 20111109
  Transmission Date: 20120403
  Serious: No
  Sender: FDA-Public Use
  Company Number: None

PATIENT
  Age: 78 Year
  Sex: Male
  Weight: 65.7716 kg

DRUGS (1)
  1. DALIRESP [Suspect]
     Indication: LUNG INFECTION
     Dosage: 1 DAILY 500MCG
     Dates: start: 20111009, end: 20111012

REACTIONS (2)
  - THINKING ABNORMAL [None]
  - FEELING ABNORMAL [None]
